FAERS Safety Report 10992849 (Version 2)
Quarter: 2015Q2

REPORT INFORMATION
  Report Type: Spontaneous
  Country: US (occurrence: US)
  Receive Date: 20150406
  Receipt Date: 20150525
  Transmission Date: 20150821
  Serious: No
  Sender: FDA-Public Use
  Company Number: US-JNJFOC-20130715836

PATIENT
  Sex: Female

DRUGS (1)
  1. REMICADE [Suspect]
     Active Substance: INFLIXIMAB
     Indication: RHEUMATOID ARTHRITIS
     Dosage: 100 TO 120 INFUSIONS
     Route: 042
     Dates: end: 20130724

REACTIONS (2)
  - Urticaria [Unknown]
  - Back pain [Unknown]

NARRATIVE: CASE EVENT DATE: 20130724
